FAERS Safety Report 19690927 (Version 1)
Quarter: 2021Q3

REPORT INFORMATION
  Report Type: Spontaneous
  Country: US (occurrence: US)
  Receive Date: 20210812
  Receipt Date: 20210812
  Transmission Date: 20211014
  Serious: No
  Sender: FDA-Public Use
  Company Number: US-PFIZER INC-2019326200

PATIENT
  Age: 80 Year
  Sex: Male

DRUGS (3)
  1. LYRICA [Suspect]
     Active Substance: PREGABALIN
     Indication: NEUROPATHY PERIPHERAL
     Dosage: 75 MG, 2X/DAY (1 CAPSULE (75MG) BY MOUTH EVERY 12 HOURS)
     Route: 048
     Dates: start: 20190724
  2. LYRICA [Suspect]
     Active Substance: PREGABALIN
     Indication: HEREDITARY DISORDER
  3. LYRICA [Suspect]
     Active Substance: PREGABALIN
     Indication: CONGENITAL NEUROPATHY
     Dosage: 300 MG, 2X/DAY
     Route: 048

REACTIONS (1)
  - Hypoacusis [Unknown]
